FAERS Safety Report 7375882-4 (Version None)
Quarter: 2011Q1

REPORT INFORMATION
  Report Type: 
  Country: None (occurrence: None)
  Receive Date: 20110325
  Receipt Date: 20110317
  Transmission Date: 20110831
  Serious: Yes (Other)
  Sender: FDA-Public Use
  Company Number: A0919848A

PATIENT
  Age: 28 Year
  Sex: Female

DRUGS (3)
  1. LEXIVA [Suspect]
     Indication: ANTIVIRAL TREATMENT
     Dosage: 1400MGD PER DAY
     Route: 065
  2. TRUVADA [Suspect]
     Indication: ANTIVIRAL TREATMENT
     Dosage: 1TAB PER DAY
     Route: 048
  3. NORVIR [Suspect]
     Indication: ANTIVIRAL TREATMENT
     Dosage: 100MGD PER DAY
     Route: 048

REACTIONS (3)
  - DRUG EXPOSURE DURING PREGNANCY [None]
  - ABORTION SPONTANEOUS [None]
  - BLIGHTED OVUM [None]
